FAERS Safety Report 9287016 (Version 2)
Quarter: 2013Q4

REPORT INFORMATION
  Report Type: Spontaneous
  Country: US (occurrence: US)
  Receive Date: 20130513
  Receipt Date: 20131016
  Transmission Date: 20140711
  Serious: Yes (Hospitalization)
  Sender: FDA-Public Use
  Company Number: US-B.I. PHARMACEUTICALS,INC./RIDGEFIELD-2013-BI-13168BP

PATIENT
  Age: 66 Year
  Sex: Male
  Weight: 149.69 kg

DRUGS (16)
  1. PRADAXA [Suspect]
     Indication: ANTICOAGULANT THERAPY
     Dosage: 300 MG
     Route: 048
     Dates: start: 20110325, end: 20110719
  2. PRADAXA [Suspect]
     Indication: ATRIAL FIBRILLATION
  3. ALLOPURINOL [Concomitant]
     Dosage: 300 MG
     Route: 048
  4. ASPIRIN EC [Concomitant]
     Dosage: 81 MG
     Route: 048
  5. CENTRUM SILVER [Concomitant]
     Route: 048
  6. LIPITOR [Concomitant]
     Dosage: 20 MG
     Route: 048
  7. LISINOPRIL [Concomitant]
     Dosage: 40 MG
     Route: 048
  8. METFORMIN [Concomitant]
     Dosage: 2000 MG
     Route: 048
  9. METAXALONE [Concomitant]
     Dosage: 1600 MG
     Route: 048
  10. LOPRESSOR [Concomitant]
     Dosage: 25 MG
     Route: 048
  11. MIRAPEX [Concomitant]
     Dosage: 1 MG
     Route: 048
  12. DEMADEX [Concomitant]
     Dosage: 1 MG
     Route: 048
  13. GLUCOTROL [Concomitant]
     Dosage: 5 MG
     Route: 048
  14. VITAMIN C [Concomitant]
     Dosage: 500 MG
     Route: 048
  15. NASONEX NASAL SPRAY [Concomitant]
     Route: 045
  16. LEVITRA [Concomitant]
     Route: 048

REACTIONS (5)
  - Gastrointestinal haemorrhage [Unknown]
  - Cardiac failure congestive [Unknown]
  - Anaemia [Unknown]
  - Haemorrhagic anaemia [Unknown]
  - Coagulopathy [Recovered/Resolved]
